FAERS Safety Report 4996696-6 (Version None)
Quarter: 2006Q2

REPORT INFORMATION
  Report Type: 
  Country: None (occurrence: None)
  Receive Date: 20060509
  Receipt Date: 20050913
  Transmission Date: 20061013
  Serious: Yes (Hospitalization, Disabling)
  Sender: FDA-Public Use
  Company Number: US-MERCK-0509USA01826

PATIENT
  Age: 44 Year
  Sex: Male
  Weight: 78 kg

DRUGS (2)
  1. VIOXX [Suspect]
     Indication: ARTHRALGIA
     Route: 048
     Dates: start: 20010517, end: 20040118
  2. VIOXX [Suspect]
     Indication: BACK PAIN
     Route: 048
     Dates: start: 20010517, end: 20040118

REACTIONS (18)
  - ABDOMINAL PAIN [None]
  - ANGINA PECTORIS [None]
  - ANGINA UNSTABLE [None]
  - BACK INJURY [None]
  - CEREBROVASCULAR ACCIDENT [None]
  - CHEST PAIN [None]
  - CORONARY ARTERY DISEASE [None]
  - DENTAL NECROSIS [None]
  - FATIGUE [None]
  - HYPERLIPIDAEMIA [None]
  - HYPERTENSION [None]
  - INJURY [None]
  - MYOCARDIAL INFARCTION [None]
  - NECK INJURY [None]
  - NIGHT SWEATS [None]
  - OSTEOARTHRITIS [None]
  - STOMACH DISCOMFORT [None]
  - TOOTH DISORDER [None]
